FAERS Safety Report 18401313 (Version 1)
Quarter: 2020Q4

REPORT INFORMATION
  Report Type: Spontaneous
  Country: US (occurrence: US)
  Receive Date: 20201019
  Receipt Date: 20201019
  Transmission Date: 20210114
  Serious: No
  Sender: FDA-Public Use
  Company Number: US-BAUSCH-BL-2020-028384

PATIENT
  Age: 87 Year
  Sex: Female

DRUGS (1)
  1. DIAZEPAM RECTAL GEL [Suspect]
     Active Substance: DIAZEPAM
     Indication: SEIZURE
     Dosage: 1 APPLICATION RECTALLY AS NEEDED
     Route: 054
     Dates: start: 20200807

REACTIONS (1)
  - Aura [Unknown]

NARRATIVE: CASE EVENT DATE: 2020
